FAERS Safety Report 23210039 (Version 1)
Quarter: 2023Q4

REPORT INFORMATION
  Report Type: Spontaneous
  Country: FR (occurrence: FR)
  Receive Date: 20231121
  Receipt Date: 20231121
  Transmission Date: 20240110
  Serious: Yes (Hospitalization, Other)
  Sender: FDA-Public Use
  Company Number: FR-AFSSAPS-PB2023001360

PATIENT
  Age: 24 Year
  Sex: Female

DRUGS (2)
  1. LAMOTRIGINE [Suspect]
     Active Substance: LAMOTRIGINE
     Indication: Product used for unknown indication
     Dosage: 2000 MILLIGRAM IN A SINGLE DOSE
     Route: 048
     Dates: start: 20231010
  2. ATARAX [Suspect]
     Active Substance: HYDROXYZINE HYDROCHLORIDE
     Indication: Poisoning deliberate
     Dosage: 500 MILLIGRAM IN A SINGLE DOSE
     Route: 048
     Dates: start: 20231010

REACTIONS (2)
  - Poisoning deliberate [Unknown]
  - Somnolence [Unknown]

NARRATIVE: CASE EVENT DATE: 20231010
